FAERS Safety Report 6844605-7 (Version None)
Quarter: 2010Q3

REPORT INFORMATION
  Report Type: 
  Country: None (occurrence: None)
  Receive Date: 20100715
  Receipt Date: 20100706
  Transmission Date: 20110219
  Serious: Yes (Death, Hospitalization)
  Sender: FDA-Public Use
  Company Number: US-JNJFOC-20100404010

PATIENT
  Sex: Male
  Weight: 75.3 kg

DRUGS (6)
  1. REMICADE [Suspect]
     Indication: RHEUMATOID ARTHRITIS
     Route: 042
  2. REMICADE [Suspect]
     Route: 042
  3. MORPHINE [Concomitant]
  4. HYDROCODONE [Concomitant]
  5. OMEPRAZOLE [Concomitant]
  6. FOLATE [Concomitant]

REACTIONS (4)
  - DEHYDRATION [None]
  - PNEUMONIA [None]
  - RESPIRATORY FAILURE [None]
  - SEPSIS [None]
